FAERS Safety Report 11849395 (Version 1)
Quarter: 2015Q4

REPORT INFORMATION
  Report Type: Spontaneous
  Country: KR (occurrence: KR)
  Receive Date: 20151218
  Receipt Date: 20151218
  Transmission Date: 20160305
  Serious: Yes (Other)
  Sender: FDA-Public Use
  Company Number: KR-AMGEN-KORCT2015135147

PATIENT
  Age: 34 Year
  Sex: Male
  Weight: 82 kg

DRUGS (11)
  1. REGPARA [Suspect]
     Active Substance: CINACALCET HYDROCHLORIDE
     Indication: HYPERPARATHYROIDISM SECONDARY
     Dosage: 25 MG, QD
     Route: 048
     Dates: start: 20150311
  2. LEVOTENSION [Concomitant]
     Dosage: 5 MG, UNK
     Route: 048
     Dates: start: 20140414, end: 20151112
  3. CARDURA [Concomitant]
     Active Substance: DOXAZOSIN MESYLATE
     Dosage: 4 MG, UNK
     Route: 048
     Dates: start: 20141114
  4. FEBURIC [Concomitant]
     Active Substance: FEBUXOSTAT
     Dosage: 5 MG, UNK
     Route: 048
     Dates: start: 20140430
  5. CALCITRIOL. [Concomitant]
     Active Substance: CALCITRIOL
     Dosage: 0.25 MUG, UNK
     Route: 048
  6. CALCIO                             /00183801/ [Concomitant]
     Dosage: 25 MG, UNK
     Route: 048
     Dates: start: 20141203
  7. CAVENAL [Concomitant]
     Dosage: 50 MG, UNK
     Route: 048
     Dates: start: 20130904, end: 20151112
  8. RENALMIN [Concomitant]
     Dosage: 1 DF, UNK
     Route: 048
     Dates: start: 20110519
  9. TELMIONE [Concomitant]
     Dosage: 160 MG, UNK
     Route: 048
     Dates: start: 20130904
  10. AMOSARTAN [Concomitant]
     Dosage: 1 TABLET
     Route: 048
     Dates: start: 20141114
  11. AMLOSK [Concomitant]
     Dosage: 5 MG, UNK
     Route: 048
     Dates: start: 20141114

REACTIONS (1)
  - Blood pressure decreased [Not Recovered/Not Resolved]

NARRATIVE: CASE EVENT DATE: 20151002
